FAERS Safety Report 5197186-0 (Version None)
Quarter: 2006Q4

REPORT INFORMATION
  Report Type: 
  Country: None (occurrence: None)
  Receive Date: 20061227
  Receipt Date: 20061212
  Transmission Date: 20070319
  Serious: Yes (Other)
  Sender: FDA-Public Use
  Company Number: 2006147498

PATIENT
  Age: 47 Year
  Sex: Female

DRUGS (1)
  1. DOSTINEX [Suspect]
     Indication: PITUITARY TUMOUR BENIGN
     Dosage: (0.5 MG, 2 IN 1 WK), ORAL
     Route: 048
     Dates: start: 20060701

REACTIONS (3)
  - AGITATION [None]
  - BLOOD PROLACTIN DECREASED [None]
  - DEPRESSION [None]
